FAERS Safety Report 6663739-3 (Version None)
Quarter: 2010Q1

REPORT INFORMATION
  Report Type: 
  Country: None (occurrence: None)
  Receive Date: 20100331
  Receipt Date: 20100331
  Transmission Date: 20100710
  Serious: Yes (Hospitalization, Other)
  Sender: FDA-Public Use
  Company Number: None

PATIENT
  Age: 43 Year
  Sex: Male
  Weight: 86 kg

DRUGS (1)
  1. OXACILLIN [Suspect]
     Indication: STAPHYLOCOCCAL BACTERAEMIA
     Dosage: 2 GM EVERY 4 HOURS INJ
     Dates: start: 20090818, end: 20090916

REACTIONS (2)
  - PRURITUS [None]
  - TUBULOINTERSTITIAL NEPHRITIS [None]
